FAERS Safety Report 8471423-9 (Version None)
Quarter: 2012Q2

REPORT INFORMATION
  Report Type: 
  Country: None (occurrence: None)
  Receive Date: 20120627
  Receipt Date: 20120620
  Transmission Date: 20120825
  Serious: Yes (Death, Hospitalization)
  Sender: FDA-Public Use
  Company Number: PHHO2011US16727

PATIENT
  Sex: Male
  Weight: 66.2 kg

DRUGS (17)
  1. MULTI-VITAMINS [Concomitant]
     Dosage: 1 TAB DAILY
     Route: 048
  2. MUCINEX D [Concomitant]
     Dosage: 60/600 MG
     Route: 048
  3. MEGACE [Concomitant]
     Dosage: 400MG IN 10ML, TAKE 1 A DAY
  4. OXYCODONE HCL [Concomitant]
     Dosage: 5 MG, UNK
     Route: 048
  5. PREVIDENT [Concomitant]
     Dosage: 1.1 %, UNK
  6. HYDROCHLOROTHIAZIDE [Concomitant]
     Dosage: 12.5 MG DAILY (MONDAY, WEDNESDAY AND FRIDAY) PRN
  7. FENTANYL [Concomitant]
     Dosage: 100 MCG PER HOUR
  8. TELMISARTAN [Concomitant]
     Dosage: 40 MG, QD
     Route: 048
  9. NYSTATIN [Concomitant]
     Dosage: 5 ML, UNK
  10. AFINITOR [Suspect]
     Indication: DIFFUSE LARGE B-CELL LYMPHOMA
     Dosage: 10 MG, DAILY
     Route: 048
     Dates: start: 20110609, end: 20110824
  11. AFINITOR [Suspect]
     Dosage: UNK
     Dates: start: 20110902
  12. MEGESTROL ACETATE [Concomitant]
     Dosage: UNK
  13. AFINITOR [Suspect]
     Dosage: NO TREATMENT
     Dates: start: 20110825, end: 20110901
  14. LBH589 [Suspect]
     Indication: DIFFUSE LARGE B-CELL LYMPHOMA
     Dosage: 40 MG, UNK
     Route: 048
     Dates: start: 20110923, end: 20110930
  15. POLYETHYLENE GLYCOL [Concomitant]
     Dosage: UNK
  16. LEVOFLOXACIN [Concomitant]
     Dosage: 500 MG, UNK
  17. MIRALAX [Concomitant]
     Dosage: 17 G, QD
     Route: 048

REACTIONS (5)
  - NEOPLASM PROGRESSION [None]
  - NEOPLASM MALIGNANT [None]
  - LUNG INFECTION [None]
  - THROMBOCYTOPENIA [None]
  - ANAEMIA [None]
